FAERS Safety Report 7930294-7 (Version None)
Quarter: 2011Q4

REPORT INFORMATION
  Report Type: 
  Country: None (occurrence: None)
  Receive Date: 20111121
  Receipt Date: 20111110
  Transmission Date: 20120403
  Serious: Yes (Hospitalization)
  Sender: FDA-Public Use
  Company Number: BR-US-EMD SERONO, INC.-7095432

PATIENT
  Sex: Female

DRUGS (5)
  1. REBIF [Suspect]
     Indication: RELAPSING-REMITTING MULTIPLE SCLEROSIS
     Route: 058
     Dates: start: 20090515
  2. EPOCLER [Concomitant]
  3. NEOSALDINA [Concomitant]
  4. ACETAMINOPHEN [Concomitant]
     Indication: CARDIOVASCULAR DISORDER
  5. METICOLIN [Concomitant]

REACTIONS (5)
  - BRUXISM [None]
  - DERMATITIS [None]
  - CHOLECYSTECTOMY [None]
  - TREMOR [None]
  - MIGRAINE [None]
